FAERS Safety Report 19597244 (Version 1)
Quarter: 2021Q3

REPORT INFORMATION
  Report Type: Spontaneous
  Country: US (occurrence: US)
  Receive Date: 20210722
  Receipt Date: 20210722
  Transmission Date: 20211014
  Serious: No
  Sender: FDA-Public Use
  Company Number: US-PFIZER INC-2021375416

PATIENT
  Age: 40 Year
  Sex: Female
  Weight: 85.26 kg

DRUGS (5)
  1. CLARITIN?D NOS [Concomitant]
     Active Substance: LORATADINE\PSEUDOEPHEDRINE SULFATE
     Dosage: UNK (CLARITIN?D 12 HOUR)
  2. IBRANCE [Suspect]
     Active Substance: PALBOCICLIB
     Dosage: 125 MG, CYCLIC (DAILY, 21 DAYS, 7 DAYS OFF)
     Route: 048
     Dates: start: 20210322
  3. ZOMETA [Concomitant]
     Active Substance: ZOLEDRONIC ACID
     Dosage: UNK (ZOMETA 4 MG/100ML PGGYBK BTL)
  4. ANASTROZOLE. [Concomitant]
     Active Substance: ANASTROZOLE
     Dosage: UNK (ANASTROZOLE 100 % POWDER)
  5. IBRANCE [Suspect]
     Active Substance: PALBOCICLIB
     Indication: HORMONE RECEPTOR POSITIVE BREAST CANCER
     Dosage: 125 MG, CYCLIC (21 DAYS ON, THEN 7 DAYS OFF)
     Route: 048
     Dates: start: 20210322

REACTIONS (7)
  - Headache [Unknown]
  - White blood cell count decreased [Unknown]
  - Vomiting [Unknown]
  - Fatigue [Recovering/Resolving]
  - Throat irritation [Unknown]
  - Nausea [Unknown]
  - Oropharyngeal discomfort [Unknown]

NARRATIVE: CASE EVENT DATE: 20210322
